FAERS Safety Report 6691750-5 (Version None)
Quarter: 2010Q2

REPORT INFORMATION
  Report Type: 
  Country: None (occurrence: None)
  Receive Date: 20100422
  Receipt Date: 20090303
  Transmission Date: 20101027
  Serious: No
  Sender: FDA-Public Use
  Company Number: US-ASTRAZENECA-2009UW05804

PATIENT
  Age: 65 Year
  Sex: Male

DRUGS (5)
  1. METOPROLOL SUCCINATE [Suspect]
     Indication: HYPERTENSION
     Route: 048
     Dates: start: 20080101
  2. NEXIUM [Concomitant]
  3. ZESTORETIC [Concomitant]
  4. CELEBREX [Concomitant]
  5. NORVASC [Concomitant]

REACTIONS (4)
  - ANGINA PECTORIS [None]
  - ARTHRITIS [None]
  - BLOOD PRESSURE INCREASED [None]
  - FEELING JITTERY [None]
